FAERS Safety Report 15888133 (Version 2)
Quarter: 2019Q1

REPORT INFORMATION
  Report Type: Spontaneous
  Country: US (occurrence: US)
  Receive Date: 20190130
  Receipt Date: 20190206
  Transmission Date: 20190417
  Serious: Yes (Other)
  Sender: FDA-Public Use
  Company Number: US-ASTRAZENECA-2018SF34702

PATIENT
  Age: 25350 Day
  Sex: Female

DRUGS (10)
  1. NEXIUM [Suspect]
     Active Substance: ESOMEPRAZOLE MAGNESIUM
     Route: 048
     Dates: start: 200501, end: 201412
  2. LASIX [Concomitant]
     Active Substance: FUROSEMIDE
     Dosage: 20MG DAILY CHANGE TO PRN
  3. NORVASC [Concomitant]
     Active Substance: AMLODIPINE BESYLATE
  4. BENICAR [Concomitant]
     Active Substance: OLMESARTAN MEDOXOMIL
  5. NEXIUM [Suspect]
     Active Substance: ESOMEPRAZOLE MAGNESIUM
     Route: 048
     Dates: start: 20021231
  6. GLYBURIDE. [Concomitant]
     Active Substance: GLYBURIDE
  7. ACTOS [Concomitant]
     Active Substance: PIOGLITAZONE HYDROCHLORIDE
  8. LEVEMIR [Concomitant]
     Active Substance: INSULIN DETEMIR
  9. SYNTHROID [Concomitant]
     Active Substance: LEVOTHYROXINE SODIUM
  10. ELAVIL [Concomitant]
     Active Substance: AMITRIPTYLINE HYDROCHLORIDE
     Dosage: 25MG AT BEDTIME AND 50 AS NEEDED

REACTIONS (2)
  - Acute kidney injury [Unknown]
  - Chronic kidney disease [Unknown]

NARRATIVE: CASE EVENT DATE: 20090330
